FAERS Safety Report 8760669 (Version 6)
Quarter: 2012Q4

REPORT INFORMATION
  Report Type: 
  Country: US (occurrence: US)
  Receive Date: 20120830
  Receipt Date: 20121213
  Transmission Date: 20130627
  Serious: Yes (Hospitalization, Other)
  Sender: FDA-Public Use
  Company Number: US-009507513-1105USA03200

PATIENT

DRUGS (11)
  1. FOSAMAX [Suspect]
     Indication: OSTEOPENIA
     Dosage: 70 mg, UNK
     Route: 048
     Dates: start: 20040109, end: 200701
  2. FOSAMAX PLUS D [Suspect]
     Indication: OSTEOPENIA
     Dosage: 70 -2800 mg QW
     Route: 048
     Dates: start: 20070215, end: 20110329
  3. PRINIVIL [Concomitant]
     Route: 048
  4. PRILOSEC [Concomitant]
  5. POTASSIUM CITRATE [Concomitant]
  6. LIPITOR [Concomitant]
  7. MOTRIN [Concomitant]
  8. ACETAMINOPHEN (+) TRAMADOL HYDROCHLORIDE [Concomitant]
  9. PROMETRIUM [Concomitant]
  10. VITAMIN D (UNSPECIFIED) [Concomitant]
  11. OMEGA-3 MARINE TRIGLYCERIDES [Concomitant]

REACTIONS (35)
  - Intramedullary rod insertion [Unknown]
  - Femur fracture [Recovering/Resolving]
  - Transfusion [Recovered/Resolved]
  - Renal stone removal [Unknown]
  - Skin cancer [Unknown]
  - Non-Hodgkin^s lymphoma [Unknown]
  - Vitamin D deficiency [Unknown]
  - Normochromic normocytic anaemia [Unknown]
  - Nephrolithiasis [Unknown]
  - Foot fracture [Unknown]
  - Endodontic procedure [Unknown]
  - Constipation [Unknown]
  - Femur fracture [Unknown]
  - Femur fracture [Recovered/Resolved]
  - Low turnover osteopathy [Unknown]
  - Osteoporosis [Unknown]
  - Foot fracture [Unknown]
  - Foot fracture [Unknown]
  - Bronchitis [Unknown]
  - Urinary tract infection [Unknown]
  - Adverse reaction [Unknown]
  - Pyelonephritis acute [Unknown]
  - Gastric polyps [Unknown]
  - Diverticulum [Unknown]
  - Nephrolithiasis [Not Recovered/Not Resolved]
  - Lithotripsy [Unknown]
  - Oedema [Unknown]
  - Vertigo [Unknown]
  - Hyperglycaemia [Unknown]
  - Hypocitraturia [Unknown]
  - Hypocalciuria [Unknown]
  - Type 2 diabetes mellitus [Unknown]
  - Tonsillectomy [Unknown]
  - Nephrogenic anaemia [Unknown]
  - Nodal marginal zone B-cell lymphoma [Unknown]
